FAERS Safety Report 8649010 (Version 3)
Quarter: 2013Q2

REPORT INFORMATION
  Report Type: Report from Study
  Country: DE (occurrence: DE)
  Receive Date: 20120704
  Receipt Date: 20130517
  Transmission Date: 20140414
  Serious: Yes (Other)
  Sender: FDA-Public Use
  Company Number: PHHY2012DE056943

PATIENT
  Sex: Female
  Weight: 75 kg

DRUGS (2)
  1. FTY 720 [Suspect]
     Dosage: 0.5 MG, QD
     Route: 048
     Dates: start: 20120427, end: 20120628
  2. FAMPYRA [Concomitant]
     Indication: MULTIPLE SCLEROSIS
     Dosage: 10 MG, 1X1
     Route: 048
     Dates: start: 20120209

REACTIONS (1)
  - Palpitations [Recovered/Resolved]
